FAERS Safety Report 7590346-0 (Version None)
Quarter: 2011Q3

REPORT INFORMATION
  Report Type: 
  Country: None (occurrence: None)
  Receive Date: 20110705
  Receipt Date: 20110705
  Transmission Date: 20111222
  Serious: Yes (Hospitalization, Other)
  Sender: FDA-Public Use
  Company Number: DK-ABBOTT-11P-044-0703896-00

PATIENT
  Sex: Female
  Weight: 107 kg

DRUGS (5)
  1. HUMIRA [Suspect]
     Dosage: PAUSED
  2. METHOTREXATE [Concomitant]
     Indication: PRODUCT USED FOR UNKNOWN INDICATION
     Route: 058
     Dates: start: 20100211, end: 20101027
  3. PREDNISOLONE [Concomitant]
     Indication: PRODUCT USED FOR UNKNOWN INDICATION
     Dates: start: 20100605, end: 20101027
  4. HUMIRA [Suspect]
     Dates: start: 20110330
  5. HUMIRA [Suspect]
     Indication: SERONEGATIVE ARTHRITIS
     Dates: start: 20100707, end: 20101027

REACTIONS (7)
  - ARTERIAL INJURY [None]
  - FEMUR FRACTURE [None]
  - LIGAMENT INJURY [None]
  - PERIPHERAL PULSE DECREASED [None]
  - FALL [None]
  - TIBIA FRACTURE [None]
  - JOINT DISLOCATION [None]
